FAERS Safety Report 16600087 (Version 1)
Quarter: 2019Q3

REPORT INFORMATION
  Report Type: Spontaneous
  Country: DE (occurrence: DE)
  Receive Date: 20190720
  Receipt Date: 20190720
  Transmission Date: 20191004
  Serious: Yes (Other)
  Sender: FDA-Public Use
  Company Number: DE-AMGEN-DEUSP2019113590

PATIENT
  Sex: Female
  Weight: 59 kg

DRUGS (1)
  1. REPATHA [Suspect]
     Active Substance: EVOLOCUMAB
     Indication: PRODUCT USED FOR UNKNOWN INDICATION
     Dosage: 140 MILLIGRAM
     Route: 065

REACTIONS (8)
  - Oropharyngeal pain [Unknown]
  - Memory impairment [Unknown]
  - Headache [Unknown]
  - Bladder disorder [Unknown]
  - Dry eye [Unknown]
  - Mucosal dryness [Unknown]
  - Arthralgia [Unknown]
  - Back pain [Unknown]
